FAERS Safety Report 24043875 (Version 2)
Quarter: 2024Q3

REPORT INFORMATION
  Report Type: Spontaneous
  Country: DE (occurrence: DE)
  Receive Date: 20240703
  Receipt Date: 20240724
  Transmission Date: 20241017
  Serious: No
  Sender: UCB
  Company Number: DE-UCBSA-2024033044

PATIENT
  Age: 17 Year
  Sex: Female

DRUGS (2)
  1. BRIVARACETAM [Suspect]
     Active Substance: BRIVARACETAM
     Indication: Juvenile absence epilepsy
     Dosage: 200MG DAILY
  2. BRIVARACETAM [Suspect]
     Active Substance: BRIVARACETAM
     Indication: Off label use

REACTIONS (2)
  - Off label use [Unknown]
  - Drug ineffective for unapproved indication [Unknown]
